FAERS Safety Report 5388428-7 (Version None)
Quarter: 2007Q3

REPORT INFORMATION
  Report Type: 
  Country: None (occurrence: None)
  Receive Date: 20070716
  Receipt Date: 20070704
  Transmission Date: 20080115
  Serious: Yes (Life-Threatening, Hospitalization)
  Sender: FDA-Public Use
  Company Number: NL-ELI_LILLY_AND_COMPANY-NL200707001072

PATIENT
  Age: 15 Year
  Sex: Male
  Weight: 48 kg

DRUGS (1)
  1. STRATTERA [Suspect]
     Indication: ATTENTION DEFICIT/HYPERACTIVITY DISORDER
     Dosage: MG, UNK

REACTIONS (4)
  - ARRHYTHMIA [None]
  - COMA [None]
  - DRUG TOXICITY [None]
  - OVERDOSE [None]
